FAERS Safety Report 10951733 (Version 1)
Quarter: 2015Q1

REPORT INFORMATION
  Report Type: Spontaneous
  Country: TH (occurrence: TH)
  Receive Date: 20150325
  Receipt Date: 20150325
  Transmission Date: 20150721
  Serious: Yes (Other)
  Sender: FDA-Public Use
  Company Number: TH-AMGEN-THASP2015027957

PATIENT
  Age: 32 Year
  Sex: Female

DRUGS (11)
  1. PREDNISOLONE. [Concomitant]
     Active Substance: PREDNISOLONE
     Indication: AUTOIMMUNE ARTHRITIS
     Dosage: 7.5 MG, DAILY
  2. ACICLA DUO [Concomitant]
     Indication: AUTOIMMUNE ARTHRITIS
     Dosage: 875/125 MG 1X2X10 DAYS
  3. ENBREL [Suspect]
     Active Substance: ETANERCEPT
     Indication: PSORIATIC ARTHROPATHY
     Dosage: 50 MG, WEEKLY
     Route: 058
  4. SULFASALAZINE. [Concomitant]
     Active Substance: SULFASALAZINE
     Indication: AUTOIMMUNE ARTHRITIS
     Dosage: 3 G, DAILY
  5. METHOTREXATE SODIUM. [Concomitant]
     Active Substance: METHOTREXATE SODIUM
     Indication: PSORIATIC ARTHROPATHY
     Dosage: 5 MG, WEEKLY
  6. METHOTREXATE SODIUM. [Concomitant]
     Active Substance: METHOTREXATE SODIUM
     Indication: AUTOIMMUNE ARTHRITIS
     Dosage: 7.5 MG, WEEKLY
  7. SULFASALAZINE. [Concomitant]
     Active Substance: SULFASALAZINE
     Indication: PSORIATIC ARTHROPATHY
     Dosage: 2 G, DAILY
  8. ACICLA DUO [Concomitant]
     Indication: PSORIATIC ARTHROPATHY
  9. SULFASALAZINE. [Concomitant]
     Active Substance: SULFASALAZINE
     Dosage: 500 MG, DAILY
  10. PREDNISOLONE. [Concomitant]
     Active Substance: PREDNISOLONE
     Indication: PSORIATIC ARTHROPATHY
     Dosage: 5 MG, DAILY
  11. ENBREL [Suspect]
     Active Substance: ETANERCEPT
     Dosage: 50 UNK, UNK
     Route: 065

REACTIONS (14)
  - Cough [Unknown]
  - Alanine aminotransferase increased [Unknown]
  - Systemic lupus erythematosus [Recovered/Resolved]
  - Red blood cell sedimentation rate increased [Unknown]
  - Sialoadenitis [Unknown]
  - Psoriasis [Unknown]
  - Polyarthritis [Unknown]
  - Dyspnoea [Unknown]
  - Decreased appetite [Unknown]
  - Urinary tract infection [Unknown]
  - Weight decreased [Unknown]
  - Hepatic steatosis [Unknown]
  - Pyrexia [Unknown]
  - Aspartate aminotransferase increased [Unknown]
